FAERS Safety Report 12542240 (Version 3)
Quarter: 2017Q1

REPORT INFORMATION
  Report Type: Spontaneous
  Country: IT (occurrence: IT)
  Receive Date: 20160708
  Receipt Date: 20170127
  Transmission Date: 20170428
  Serious: Yes (Hospitalization)
  Sender: FDA-Public Use
  Company Number: IT-B.I. PHARMACEUTICALS,INC./RIDGEFIELD-2016-BI-28094IT

PATIENT
  Age: 87 Year
  Sex: Female

DRUGS (7)
  1. TIOTROPIUM [Concomitant]
     Active Substance: TIOTROPIUM
     Indication: PRODUCT USED FOR UNKNOWN INDICATION
  2. PRADAXA [Suspect]
     Active Substance: DABIGATRAN ETEXILATE MESYLATE
     Indication: PRODUCT USED FOR UNKNOWN INDICATION
     Route: 065
  3. CANRENON [Concomitant]
     Indication: PRODUCT USED FOR UNKNOWN INDICATION
  4. FUROSEMIDE. [Concomitant]
     Active Substance: FUROSEMIDE
     Indication: PRODUCT USED FOR UNKNOWN INDICATION
  5. PANTOPRAZOLE [Concomitant]
     Active Substance: PANTOPRAZOLE SODIUM
     Indication: PRODUCT USED FOR UNKNOWN INDICATION
  6. BISOPROLOL [Concomitant]
     Active Substance: BISOPROLOL
     Indication: PRODUCT USED FOR UNKNOWN INDICATION
  7. FLUTICASON [Concomitant]
     Active Substance: FLUTICASONE
     Indication: PRODUCT USED FOR UNKNOWN INDICATION
     Dosage: DOSE PER APPLICATION: 250/25 MCG

REACTIONS (13)
  - Cardiac failure [Unknown]
  - Pneumonia [Recovered/Resolved]
  - Haemorrhoidal haemorrhage [Unknown]
  - Sopor [Unknown]
  - Atrial fibrillation [Unknown]
  - Respiratory failure [Unknown]
  - Diverticulum intestinal [Unknown]
  - Hypotension [Unknown]
  - Tachycardia [Unknown]
  - Haemorrhoids [Recovered/Resolved]
  - Anorectal disorder [Recovered/Resolved]
  - Rectal haemorrhage [Recovered/Resolved]
  - Mitral valve incompetence [Unknown]
